FAERS Safety Report 4454563-0 (Version None)
Quarter: 2004Q3

REPORT INFORMATION
  Report Type: 
  Country: None (occurrence: None)
  Receive Date: 20040921
  Receipt Date: 20040914
  Transmission Date: 20050211
  Serious: Yes (Other)
  Sender: FDA-Public Use
  Company Number: US-JNJFOC-20040904415

PATIENT
  Sex: Female

DRUGS (6)
  1. RISPERDAL [Suspect]
     Indication: MENTAL STATUS CHANGES
     Route: 049
  2. DEPAKOTE [Concomitant]
  3. SYNTHROID [Concomitant]
  4. DEPAKOTE [Concomitant]
  5. PAXIL [Concomitant]
  6. LITHIUM [Concomitant]

REACTIONS (15)
  - ABDOMINAL PAIN [None]
  - ASTHENIA [None]
  - BLOOD UREA INCREASED [None]
  - BRONCHITIS [None]
  - CEREBROVASCULAR DISORDER [None]
  - CHRONIC OBSTRUCTIVE AIRWAYS DISEASE EXACERBATED [None]
  - FALL [None]
  - HYPERGLYCAEMIA [None]
  - LEUKOCYTOSIS [None]
  - MICROANGIOPATHY [None]
  - NUCLEAR MAGNETIC RESONANCE IMAGING BRAIN ABNORMAL [None]
  - OEDEMA MUCOSAL [None]
  - PNEUMONIA [None]
  - TARDIVE DYSKINESIA [None]
  - VENTRICULAR HYPERTROPHY [None]
